FAERS Safety Report 7995607-9 (Version None)
Quarter: 2011Q4

REPORT INFORMATION
  Report Type: 
  Country: None (occurrence: None)
  Receive Date: 20111220
  Receipt Date: 20111213
  Transmission Date: 20120403
  Serious: Yes (Other)
  Sender: FDA-Public Use
  Company Number: FR-MERCK-1112USA01910

PATIENT
  Age: 66 Year
  Sex: Male

DRUGS (5)
  1. PREDNISOLONE [Suspect]
     Indication: ASTHMA
     Route: 048
     Dates: start: 20100101
  2. ZOCOR [Suspect]
     Indication: HYPERCHOLESTEROLAEMIA
     Route: 048
  3. ZITHROMAX [Suspect]
     Indication: COUGH
     Route: 048
     Dates: start: 20111024
  4. BUDESONIDE [Suspect]
     Indication: ASTHMA
     Route: 055
  5. LEVOFLOXACIN [Suspect]
     Indication: COUGH
     Route: 048
     Dates: start: 20111024, end: 20111031

REACTIONS (1)
  - TENDONITIS [None]
